FAERS Safety Report 9885907 (Version 2)
Quarter: 2014Q1

REPORT INFORMATION
  Report Type: Spontaneous
  Country: DE (occurrence: None)
  Receive Date: 20140206
  Receipt Date: 20140218
  Transmission Date: 20141002
  Serious: Yes (Death, Hospitalization)
  Sender: FDA-Public Use
  Company Number: AUR-APL-2014-01137

PATIENT
  Age: 77 Year
  Sex: Female
  Weight: 54 kg

DRUGS (5)
  1. LEVETIRACETAM (LEVETIRACETAM) [Suspect]
     Indication: GRAND MAL CONVULSION
     Dosage: 4 DOSAGE FORMS (2 DOSAGE FORMS , 2 IN
     Route: 048
     Dates: start: 201308, end: 20131120
  2. DONEPEZIL (DONEPEZIL) [Suspect]
     Indication: DEMENTIA
     Route: 048
     Dates: start: 201308, end: 20131120
  3. ASS (ACETYLSALICYLIC ACID) [Concomitant]
  4. IRBESARTAN (IRBESARTAN) [Concomitant]
  5. MOXONIDIN (MOXONIDINE) [Concomitant]

REACTIONS (2)
  - Acute hepatic failure [None]
  - Hepatorenal syndrome [None]
